FAERS Safety Report 8491296-8 (Version None)
Quarter: 2012Q3

REPORT INFORMATION
  Report Type: 
  Country: None (occurrence: None)
  Receive Date: 20120706
  Receipt Date: 20120628
  Transmission Date: 20120928
  Serious: Yes (Hospitalization)
  Sender: FDA-Public Use
  Company Number: NL-ASTELLAS-2012US005775

PATIENT
  Sex: Female
  Weight: 57 kg

DRUGS (4)
  1. TACROLIMUS [Suspect]
     Dosage: 0.03 %, ONCE A DAY TWICE WEEKLY
     Route: 061
     Dates: start: 20040906
  2. TACROLIMUS [Suspect]
     Indication: DERMATITIS ATOPIC
     Dosage: 0.03 %, WEEKLY
     Route: 061
     Dates: start: 20040906
  3. MEDROXYPROGESTERONE [Concomitant]
     Indication: MENSTRUATION IRREGULAR
     Dosage: UNK
     Route: 048
     Dates: start: 20091101
  4. ETHINYL ESTRADIOL [Concomitant]
     Indication: MENSTRUATION IRREGULAR
     Dosage: UNK
     Route: 048
     Dates: start: 20091101

REACTIONS (1)
  - SUPERNUMERARY TEETH [None]
